FAERS Safety Report 8717836 (Version 2)
Quarter: 2015Q3

REPORT INFORMATION
  Report Type: Report from Study
  Country: US (occurrence: US)
  Receive Date: 20120810
  Receipt Date: 20150710
  Transmission Date: 20151125
  Serious: Yes (Other)
  Sender: FDA-Public Use
  Company Number: US-ROCHE-1097920

PATIENT
  Sex: Male

DRUGS (5)
  1. HEPARIN [Concomitant]
     Active Substance: HEPARIN SODIUM
     Route: 042
  2. NITRO DRIP [Concomitant]
     Dosage: 10 UG/MIN
     Route: 065
  3. LOPRESSOR [Concomitant]
     Active Substance: METOPROLOL TARTRATE
     Route: 048
  4. ACTIVASE [Suspect]
     Active Substance: ALTEPLASE
     Indication: ACUTE MYOCARDIAL INFARCTION
     Route: 042
  5. NITRO DRIP [Concomitant]
     Indication: PAIN
     Dosage: 5 UG/MIN.
     Route: 042

REACTIONS (2)
  - Injection site haemorrhage [Unknown]
  - Chest pain [Unknown]
